FAERS Safety Report 11391808 (Version 1)
Quarter: 2015Q3

REPORT INFORMATION
  Report Type: Spontaneous
  Country: US (occurrence: US)
  Receive Date: 20150818
  Receipt Date: 20150818
  Transmission Date: 20151125
  Serious: No
  Sender: FDA-Public Use
  Company Number: US-PFIZER INC-2015273250

PATIENT
  Age: 37 Year
  Sex: Female

DRUGS (3)
  1. ZOLOFT [Interacting]
     Active Substance: SERTRALINE HYDROCHLORIDE
     Indication: PANIC ATTACK
  2. TAMOXIFEN CITRATE. [Interacting]
     Active Substance: TAMOXIFEN CITRATE
     Dosage: UNK
     Dates: start: 201503
  3. ZOLOFT [Suspect]
     Active Substance: SERTRALINE HYDROCHLORIDE
     Indication: ANXIETY
     Dosage: 50 MG, 1X/DAY
     Dates: start: 201503

REACTIONS (2)
  - Drug ineffective [Unknown]
  - Drug interaction [Unknown]
